FAERS Safety Report 4821891-6 (Version None)
Quarter: 2005Q4

REPORT INFORMATION
  Report Type: 
  Country: None (occurrence: None)
  Receive Date: 20051107
  Receipt Date: 20051028
  Transmission Date: 20060501
  Serious: Yes (Other)
  Sender: FDA-Public Use
  Company Number: JP-ROCHE-422890

PATIENT
  Sex: Female

DRUGS (2)
  1. HORIZON [Suspect]
     Indication: CONVULSION
     Route: 065
  2. PHENOBARBITAL [Suspect]
     Indication: CONVULSION
     Route: 065

REACTIONS (1)
  - RENAL TUBULAR DISORDER [None]
